FAERS Safety Report 4327547-0 (Version None)
Quarter: 2004Q1

REPORT INFORMATION
  Report Type: 
  Country: None (occurrence: None)
  Receive Date: 20040325
  Receipt Date: 20040312
  Transmission Date: 20041129
  Serious: Yes (Hospitalization)
  Sender: FDA-Public Use
  Company Number: HQWYE797403FEB04

PATIENT
  Sex: Male

DRUGS (8)
  1. CORDARONE [Suspect]
     Dosage: 200 MG 1X PER 1 DAY, ORAL
     Route: 048
  2. PREVISCAN (FLUINDIONE, ) [Concomitant]
     Dosage: ORAL
     Route: 048
     Dates: start: 20010117, end: 20010205
  3. ENDOTELON (HERBAL EXTRACTS NOS/VITIS VINIFERA) [Concomitant]
  4. ACUITEL (QUINAPRIL) [Concomitant]
  5. EUPHYTOSE (BALLOTI EXTRACT/CRATAEGUS EXTRACT/KOLA/PASSIFLORA EXTRACT/P [Concomitant]
  6. CHONDROSULF (CHONDROITIN SULFATE SODIUM) [Concomitant]
  7. DIGOXIN [Concomitant]
  8. LASIX [Concomitant]

REACTIONS (4)
  - DRUG INTERACTION [None]
  - HAEMATURIA [None]
  - INTERNATIONAL NORMALISED RATIO INCREASED [None]
  - PROTHROMBIN TIME PROLONGED [None]
